FAERS Safety Report 8511721 (Version 2)
Quarter: 2012Q4

REPORT INFORMATION
  Report Type: 
  Country: US (occurrence: US)
  Receive Date: 20120413
  Receipt Date: 20121214
  Transmission Date: 20130627
  Serious: Yes (Other)
  Sender: FDA-Public Use
  Company Number: US-ASTRAZENECA-2012SE01342

PATIENT
  Age: 72 Year
  Sex: Female
  Weight: 65.3 kg

DRUGS (17)
  1. NEXIUM [Suspect]
     Indication: GASTROOESOPHAGEAL REFLUX DISEASE
     Route: 048
     Dates: start: 20100430
  2. ZYRTEC [Concomitant]
     Indication: MULTIPLE ALLERGIES
  3. CIPRO [Concomitant]
     Indication: INFECTION
  4. ELIMITE [Concomitant]
     Indication: ACARODERMATITIS
  5. FLEXERIL [Concomitant]
     Indication: MUSCLE SPASMS
  6. KENALOG CREAM [Concomitant]
     Indication: RASH
  7. LEVOXYL [Concomitant]
     Indication: THYROID DISORDER
  8. LIDODERM [Concomitant]
  9. MUCINEX [Concomitant]
  10. NITROGLYCERIN [Concomitant]
     Indication: CHEST PAIN
  11. TENS UNIT [Concomitant]
     Indication: MUSCLE ELECTROSTIMULATION THERAPY
  12. TRENTAL [Concomitant]
     Indication: CARDIOVASCULAR DISORDER
  13. VITAMIN E [Concomitant]
  14. ARICEPT [Concomitant]
     Indication: MEMORY IMPAIRMENT
  15. BYSTOLIC [Concomitant]
     Indication: BLOOD PRESSURE ABNORMAL
  16. BYSTOLIC [Concomitant]
     Indication: TACHYCARDIA
  17. CALCIUM WITH VITAMIN D [Concomitant]

REACTIONS (13)
  - Cerebrovascular accident [Unknown]
  - Memory impairment [Unknown]
  - Blood pressure abnormal [Unknown]
  - Heart rate increased [Unknown]
  - Infection [Unknown]
  - Muscle spasms [Unknown]
  - Chest pain [Unknown]
  - Multiple allergies [Unknown]
  - Hypertension [Unknown]
  - Type 2 diabetes mellitus [Unknown]
  - Dementia [Unknown]
  - Rash [Unknown]
  - Rash [Unknown]
